FAERS Safety Report 5194644-X (Version None)
Quarter: 2006Q4

REPORT INFORMATION
  Report Type: 
  Country: None (occurrence: None)
  Receive Date: 20061222
  Receipt Date: 20061222
  Transmission Date: 20070319
  Serious: Yes (Life-Threatening, Hospitalization)
  Sender: FDA-Public Use
  Company Number: None

PATIENT
  Sex: Female
  Weight: 86.1834 kg

DRUGS (1)
  1. AVELOX [Suspect]
     Indication: RESPIRATORY TRACT INFECTION
     Dosage: 400 MGM   ONCE DAILY X 4 DAY   PO
     Route: 048
     Dates: start: 20061214, end: 20061214

REACTIONS (8)
  - BURNING SENSATION [None]
  - DYSPNOEA [None]
  - GENERALISED ERYTHEMA [None]
  - HEART RATE INCREASED [None]
  - NAUSEA [None]
  - PRURITUS [None]
  - SALIVARY HYPERSECRETION [None]
  - SWOLLEN TONGUE [None]
